FAERS Safety Report 19574682 (Version 1)
Quarter: 2021Q3

REPORT INFORMATION
  Report Type: Spontaneous
  Country: US (occurrence: US)
  Receive Date: 20210719
  Receipt Date: 20210719
  Transmission Date: 20211014
  Serious: Yes (Death)
  Sender: FDA-Public Use
  Company Number: US-DRREDDYS-LIT/USA/21/0137789

PATIENT
  Age: 10 Year
  Sex: Female

DRUGS (12)
  1. VINORELBINE [Suspect]
     Active Substance: VINORELBINE TARTRATE
     Indication: LINEAGE SWITCH LEUKAEMIA
  2. VINORELBINE [Suspect]
     Active Substance: VINORELBINE TARTRATE
     Indication: ACUTE MYELOID LEUKAEMIA
  3. CLOFARABINE. [Suspect]
     Active Substance: CLOFARABINE
     Indication: LINEAGE SWITCH LEUKAEMIA
  4. GEMTUZUMAB OZOGAMICIN [Suspect]
     Active Substance: GEMTUZUMAB OZOGAMICIN
     Indication: ACUTE MYELOID LEUKAEMIA
  5. CLOFARABINE. [Suspect]
     Active Substance: CLOFARABINE
     Indication: ACUTE MYELOID LEUKAEMIA
  6. DECITABINE. [Suspect]
     Active Substance: DECITABINE
     Indication: ACUTE MYELOID LEUKAEMIA
  7. THIOTEPA. [Suspect]
     Active Substance: THIOTEPA
     Indication: ACUTE MYELOID LEUKAEMIA
  8. THIOTEPA. [Suspect]
     Active Substance: THIOTEPA
     Indication: LINEAGE SWITCH LEUKAEMIA
  9. DECITABINE. [Suspect]
     Active Substance: DECITABINE
     Indication: LINEAGE SWITCH LEUKAEMIA
  10. TOPOTECAN HYDROCHLORIDE. [Suspect]
     Active Substance: TOPOTECAN HYDROCHLORIDE
     Indication: ACUTE MYELOID LEUKAEMIA
  11. TOPOTECAN HYDROCHLORIDE. [Suspect]
     Active Substance: TOPOTECAN HYDROCHLORIDE
     Indication: LINEAGE SWITCH LEUKAEMIA
  12. GEMTUZUMAB OZOGAMICIN [Suspect]
     Active Substance: GEMTUZUMAB OZOGAMICIN
     Indication: LINEAGE SWITCH LEUKAEMIA

REACTIONS (1)
  - Leukaemia recurrent [Fatal]
